FAERS Safety Report 16159835 (Version 3)
Quarter: 2019Q2

REPORT INFORMATION
  Report Type: Spontaneous
  Country: BR (occurrence: BR)
  Receive Date: 20190404
  Receipt Date: 20190517
  Transmission Date: 20190711
  Serious: Yes (Hospitalization, Other)
  Sender: FDA-Public Use
  Company Number: BR-JNJFOC-20190404473

PATIENT
  Age: 72 Year
  Sex: Male

DRUGS (6)
  1. ATENOLOL. [Concomitant]
     Active Substance: ATENOLOL
     Route: 048
     Dates: start: 1994
  2. CLONAZEPAM. [Concomitant]
     Active Substance: CLONAZEPAM
     Route: 048
  3. XARELTO [Suspect]
     Active Substance: RIVAROXABAN
     Indication: THROMBOSIS
     Route: 048
     Dates: start: 2014, end: 20190406
  4. AMITRIPTYLIN [Concomitant]
     Active Substance: AMITRIPTYLINE
     Route: 048
  5. CELECOXIBE TEUTO [Interacting]
     Active Substance: CELECOXIB
     Indication: SWELLING
     Route: 048
     Dates: start: 20190309, end: 20190311
  6. PURAN [Concomitant]
     Active Substance: LEVOTHYROXINE SODIUM
     Route: 048
     Dates: start: 2016

REACTIONS (6)
  - Thrombosis [Not Recovered/Not Resolved]
  - Fall [Unknown]
  - Erythema [Recovered/Resolved]
  - Skin warm [Recovered/Resolved]
  - Drug interaction [Recovered/Resolved]
  - Limb operation [Recovered/Resolved]

NARRATIVE: CASE EVENT DATE: 20190308
